FAERS Safety Report 13084194 (Version 1)
Quarter: 2017Q1

REPORT INFORMATION
  Report Type: Spontaneous
  Country: US (occurrence: US)
  Receive Date: 20170103
  Receipt Date: 20170103
  Transmission Date: 20170428
  Serious: No
  Sender: FDA-Public Use
  Company Number: None

PATIENT
  Age: 36 Year
  Sex: Female
  Weight: 90.8 kg

DRUGS (5)
  1. MAGNESIUM [Concomitant]
     Active Substance: MAGNESIUM
  2. VIT B [Concomitant]
     Active Substance: VITAMIN B
  3. PARAGARD T 380A [Suspect]
     Active Substance: COPPER
     Dates: start: 20070110, end: 20170102
  4. MULTIUNIT [Concomitant]
  5. VITAMIN D [Concomitant]
     Active Substance: CHOLECALCIFEROL

REACTIONS (5)
  - Tearfulness [None]
  - Thinking abnormal [None]
  - Feeling abnormal [None]
  - Irritability [None]
  - Premenstrual syndrome [None]
